FAERS Safety Report 7756032-9 (Version None)
Quarter: 2011Q3

REPORT INFORMATION
  Report Type: 
  Country: None (occurrence: None)
  Receive Date: 20110908
  Receipt Date: 20110826
  Transmission Date: 20111222
  Serious: Yes (Other)
  Sender: FDA-Public Use
  Company Number: 2011029643

PATIENT
  Age: 56 Year
  Sex: Female

DRUGS (2)
  1. GAMUNEX [Suspect]
     Indication: IMMUNODEFICIENCY COMMON VARIABLE
  2. HIZENTRA [Suspect]
     Indication: IMMUNODEFICIENCY COMMON VARIABLE
     Dates: start: 20110101, end: 20110601

REACTIONS (6)
  - PSORIASIS [None]
  - FEELING ABNORMAL [None]
  - DRUG INEFFECTIVE [None]
  - EYE SWELLING [None]
  - INFUSION RELATED REACTION [None]
  - MALAISE [None]
